FAERS Safety Report 5773550-3 (Version None)
Quarter: 2008Q2

REPORT INFORMATION
  Report Type: 
  Country: None (occurrence: None)
  Receive Date: 20080616
  Receipt Date: 20080606
  Transmission Date: 20081010
  Serious: Yes (Death)
  Sender: FDA-Public Use
  Company Number: NO-BAYER-200820114GPV

PATIENT
  Age: 25 Year
  Sex: Female

DRUGS (1)
  1. YASMIN [Suspect]
     Indication: CONTRACEPTION
     Route: 048
     Dates: end: 20080501

REACTIONS (2)
  - CIRCULATORY COLLAPSE [None]
  - PULMONARY EMBOLISM [None]
